FAERS Safety Report 16514589 (Version 1)
Quarter: 2019Q3

REPORT INFORMATION
  Report Type: Spontaneous
  Country: FR (occurrence: FR)
  Receive Date: 20190702
  Receipt Date: 20190702
  Transmission Date: 20191004
  Serious: Yes (Disabling)
  Sender: FDA-Public Use
  Company Number: FR-MYLANLABS-2019M1060504

PATIENT
  Age: 54 Year
  Sex: Male

DRUGS (3)
  1. IZILOX [Suspect]
     Active Substance: MOXIFLOXACIN HYDROCHLORIDE
     Indication: RESPIRATORY TRACT INFECTION
     Dosage: 400 MILLIGRAM, QD (TOTAL DAILY DOSE: 400 MG  UNIT DOSE: 400 MG)
     Route: 048
     Dates: start: 20060115, end: 20061010
  2. AZITHROMYCIN ANHYDROUS. [Suspect]
     Active Substance: AZITHROMYCIN ANHYDROUS
     Indication: RESPIRATORY TRACT INFECTION
     Dosage: 250 MILLIGRAM, QD (TOTAL DAILY DOSE: 250 MG  UNIT DOSE: 250 MG)
     Route: 048
     Dates: start: 20060115
  3. MYAMBUTOL [Suspect]
     Active Substance: ETHAMBUTOL HYDROCHLORIDE
     Indication: RESPIRATORY TRACT INFECTION
     Dosage: 800 MILLIGRAM, QD (TOTAL DAILY DOSE: 800 MG  UNIT DOSE: 800 MG)
     Route: 048
     Dates: start: 20060115, end: 20061006

REACTIONS (1)
  - Visual impairment [Recovering/Resolving]

NARRATIVE: CASE EVENT DATE: 20061006
